FAERS Safety Report 6042676-1 (Version None)
Quarter: 2009Q1

REPORT INFORMATION
  Report Type: 
  Country: None (occurrence: None)
  Receive Date: 20090119
  Receipt Date: 20090107
  Transmission Date: 20090719
  Serious: Yes (Other)
  Sender: FDA-Public Use
  Company Number: PHHY2009BR00784

PATIENT
  Sex: Male
  Weight: 53 kg

DRUGS (3)
  1. LUDIOMIL 75 [Suspect]
     Indication: DEPRESSION
     Dosage: 75 MG, QD
     Route: 048
     Dates: end: 20081201
  2. FRISIUM [Concomitant]
     Indication: DEPRESSION
     Dosage: 20 MG, HALF TAB AT NIGHT
     Route: 048
     Dates: end: 20081001
  3. DIAZEPAM [Concomitant]
     Indication: DEPRESSION
     Dosage: 10 MG, HALF TAB DAILY
     Route: 048
     Dates: start: 20081001

REACTIONS (2)
  - BREAST MASS [None]
  - CHEST PAIN [None]
